FAERS Safety Report 7236141-3 (Version None)
Quarter: 2011Q1

REPORT INFORMATION
  Report Type: 
  Country: None (occurrence: None)
  Receive Date: 20110120
  Receipt Date: 20110114
  Transmission Date: 20110831
  Serious: No
  Sender: FDA-Public Use
  Company Number: US-TEVA-263155USA

PATIENT
  Sex: Female

DRUGS (1)
  1. ALBUTEROL SULFATE AUTOHALER [Suspect]
     Indication: ASTHMA
     Route: 055
     Dates: start: 20091101, end: 20110111

REACTIONS (4)
  - DRUG INEFFECTIVE [None]
  - PRURITUS [None]
  - DEVICE MALFUNCTION [None]
  - ASTHMA [None]
